FAERS Safety Report 24713200 (Version 1)
Quarter: 2024Q4

REPORT INFORMATION
  Report Type: Spontaneous
  Country: US (occurrence: US)
  Receive Date: 20241209
  Receipt Date: 20241209
  Transmission Date: 20250114
  Serious: No
  Sender: REGENERON
  Company Number: US-REGENERON PHARMACEUTICALS, INC.-2023-147665

PATIENT
  Sex: Female

DRUGS (2)
  1. EYLEA [Suspect]
     Active Substance: AFLIBERCEPT
     Indication: Macular degeneration
     Dosage: UNK, EVERY 10 WEEKS, INTO RIGHT EYE (PATIENT RECEIVED TREATMENT IN BOTH EYES), FORMULATION: UNKNOWN
  2. EYLEA [Suspect]
     Active Substance: AFLIBERCEPT
     Dosage: UNK, EVERY 10 WEEKS, INTO LEFT EYE, FORMULATION: UNKNOWN

REACTIONS (6)
  - Dry eye [Unknown]
  - Vitreous floaters [Unknown]
  - Injection site pain [Unknown]
  - Ocular discomfort [Unknown]
  - Eye pain [Unknown]
  - Eye irritation [Unknown]
